FAERS Safety Report 7612120-9 (Version None)
Quarter: 2011Q3

REPORT INFORMATION
  Report Type: 
  Country: None (occurrence: None)
  Receive Date: 20110715
  Receipt Date: 20110711
  Transmission Date: 20111222
  Serious: Yes (Hospitalization, Other)
  Sender: FDA-Public Use
  Company Number: US-ELI_LILLY_AND_COMPANY-US200903003340

PATIENT
  Sex: Female
  Weight: 84.807 kg

DRUGS (21)
  1. POTASSIUM [Concomitant]
  2. ATARAX [Concomitant]
     Indication: ANXIETY
  3. ZEGERID [Concomitant]
     Indication: GASTROOESOPHAGEAL REFLUX DISEASE
  4. NEURONTIN [Concomitant]
     Indication: ANXIETY
  5. FELODIPINE [Concomitant]
     Indication: HYPERTENSION
  6. BYETTA [Suspect]
     Dosage: 5 UG, BID
     Route: 058
     Dates: start: 20050401
  7. BYETTA [Suspect]
     Dosage: 10 UG, BID
  8. NOVOLOG [Concomitant]
     Indication: DIABETES MELLITUS
  9. BENAZEPRIL HYDROCHLORIDE [Concomitant]
     Indication: HYPERTENSION
  10. ZOCOR [Concomitant]
     Indication: HYPERCHOLESTEROLAEMIA
  11. ASPIRIN [Concomitant]
     Indication: PAIN
  12. LASIX [Concomitant]
     Indication: HYPERTENSION
  13. METFORMIN HCL [Concomitant]
     Indication: DIABETES MELLITUS
  14. PREDNISONE [Concomitant]
     Indication: HYPERSENSITIVITY
  15. GLUCOVANCE [Concomitant]
  16. TRICOR [Concomitant]
     Indication: HYPERCHOLESTEROLAEMIA
  17. LOPRESSOR [Concomitant]
     Indication: HYPERTENSION
  18. THEOPHYLLINE [Concomitant]
     Indication: ASTHMA
  19. PLAVIX [Concomitant]
     Indication: ANTICOAGULANT THERAPY
  20. ZITHROMAX [Concomitant]
     Indication: BACTERIAL INFECTION
  21. SOLU-MEDROL [Concomitant]
     Indication: ASTHMA

REACTIONS (4)
  - WEIGHT DECREASED [None]
  - OFF LABEL USE [None]
  - RENAL INJURY [None]
  - PANCREATITIS ACUTE [None]
